FAERS Safety Report 8876107 (Version 2)
Quarter: 2012Q4

REPORT INFORMATION
  Report Type: 
  Country: FR (occurrence: FR)
  Receive Date: 20121030
  Receipt Date: 20121031
  Transmission Date: 20130627
  Serious: Yes (Hospitalization)
  Sender: FDA-Public Use
  Company Number: FR-TEVA-365974ISR

PATIENT
  Sex: Female

DRUGS (5)
  1. AZILECT [Suspect]
     Indication: PARKINSON^S DISEASE
     Route: 048
     Dates: start: 201201, end: 201206
  2. CITALOPRAM [Interacting]
     Indication: DEPRESSION
  3. LEVODOPA [Concomitant]
     Indication: PARKINSON^S DISEASE
  4. LEVODOPA [Concomitant]
  5. DOPAMINERGIC AGENTS (UNKNOWN BRAND NAME) [Concomitant]
     Indication: PARKINSON^S DISEASE

REACTIONS (5)
  - Hyperthermia [Recovered/Resolved]
  - Hyperventilation [Recovered/Resolved]
  - Drug interaction [Recovered/Resolved]
  - Convulsion [Recovered/Resolved]
  - Serotonin syndrome [Recovering/Resolving]
